FAERS Safety Report 20855056 (Version 1)
Quarter: 2022Q2

REPORT INFORMATION
  Report Type: Spontaneous
  Country: US (occurrence: None)
  Receive Date: 20220519
  Receipt Date: 20220519
  Transmission Date: 20220720
  Serious: Yes (Life-Threatening)
  Sender: FDA-Public Use
  Company Number: None

PATIENT
  Age: 52 Year
  Sex: Female
  Weight: 96.3 kg

DRUGS (1)
  1. ENTYVIO [Suspect]
     Active Substance: VEDOLIZUMAB
     Indication: Colitis
     Route: 041
     Dates: start: 20220406, end: 20220518

REACTIONS (3)
  - Dyspnoea [None]
  - Oxygen saturation decreased [None]
  - Cyanosis [None]

NARRATIVE: CASE EVENT DATE: 20220518
